FAERS Safety Report 24990221 (Version 1)
Quarter: 2025Q1

REPORT INFORMATION
  Report Type: Spontaneous
  Country: GB (occurrence: GB)
  Receive Date: 20250220
  Receipt Date: 20250220
  Transmission Date: 20250408
  Serious: Yes (Hospitalization, Other)
  Sender: AUROBINDO
  Company Number: GB-MHRA-MED-202502011538086590-GDVJN

PATIENT
  Age: 35 Year
  Sex: Female
  Weight: 68 kg

DRUGS (2)
  1. QUETIAPINE [Suspect]
     Active Substance: QUETIAPINE
     Indication: Anxiety disorder
     Dosage: 25 MILLIGRAM, ONCE A DAY (25MG ONCE AT NIGHT)
     Route: 065
     Dates: start: 20250117, end: 20250124
  2. FLUOXETINE [Concomitant]
     Active Substance: FLUOXETINE HYDROCHLORIDE
     Indication: Anxiety
     Route: 065
     Dates: start: 20241224

REACTIONS (1)
  - Mydriasis [Recovering/Resolving]

NARRATIVE: CASE EVENT DATE: 20250122
